FAERS Safety Report 5370394-1 (Version None)
Quarter: 2007Q2

REPORT INFORMATION
  Report Type: 
  Country: None (occurrence: None)
  Receive Date: 20070626
  Receipt Date: 20070111
  Transmission Date: 20071010
  Serious: No
  Sender: FDA-Public Use
  Company Number: US-AMGEN-US206565

PATIENT
  Age: 83 Year
  Sex: Male

DRUGS (2)
  1. ARANESP [Suspect]
     Indication: ANAEMIA
     Route: 065
     Dates: start: 20050101
  2. VITAMIN B-12 [Concomitant]
     Route: 065

REACTIONS (2)
  - BACK PAIN [None]
  - HAEMOGLOBIN DECREASED [None]
